FAERS Safety Report 12979759 (Version 1)
Quarter: 2016Q4

REPORT INFORMATION
  Report Type: Spontaneous
  Country: GB (occurrence: GB)
  Receive Date: 20161128
  Receipt Date: 20161128
  Transmission Date: 20170207
  Serious: Yes (Other)
  Sender: FDA-Public Use
  Company Number: GB-NOVOPROD-520225

PATIENT
  Age: 19 Year
  Sex: Female

DRUGS (1)
  1. TRESIBA PENFILL [Suspect]
     Active Substance: INSULIN DEGLUDEC
     Indication: PRODUCT USED FOR UNKNOWN INDICATION
     Dosage: 300 U, SINGLE
     Route: 065
     Dates: start: 20161116

REACTIONS (2)
  - Hypoglycaemia [Not Recovered/Not Resolved]
  - Intentional overdose [Not Recovered/Not Resolved]

NARRATIVE: CASE EVENT DATE: 20161116
